FAERS Safety Report 23606198 (Version 1)
Quarter: 2024Q1

REPORT INFORMATION
  Report Type: Spontaneous
  Country: DE (occurrence: DE)
  Receive Date: 20240307
  Receipt Date: 20240307
  Transmission Date: 20240410
  Serious: Yes (Other)
  Sender: FDA-Public Use
  Company Number: None

PATIENT
  Sex: Male

DRUGS (1)
  1. CIPROFLOXACIN [Suspect]
     Active Substance: CIPROFLOXACIN
     Indication: Product used for unknown indication
     Dosage: 500 MILLIGRAM, FIVE TIME A DAY 5X 500 MG
     Route: 065

REACTIONS (6)
  - Tendon rupture [Unknown]
  - Limb discomfort [Unknown]
  - Pain in extremity [Unknown]
  - Tendon pain [Unknown]
  - Tendon discomfort [Unknown]
  - Arthralgia [Unknown]
